FAERS Safety Report 17598191 (Version 2)
Quarter: 2020Q2

REPORT INFORMATION
  Report Type: Spontaneous
  Country: US (occurrence: US)
  Receive Date: 20200330
  Receipt Date: 20200414
  Transmission Date: 20200713
  Serious: Yes (Other)
  Sender: FDA-Public Use
  Company Number: US-PFIZER INC-2020129520

PATIENT
  Age: 36 Year
  Sex: Female
  Weight: 52 kg

DRUGS (2)
  1. LIDOCAINE HCL [Suspect]
     Active Substance: LIDOCAINE HYDROCHLORIDE
     Indication: LOCAL ANAESTHESIA
     Dosage: 1.4 MG/KG, UNK
     Route: 042
  2. LIDOCAINE HCL [Suspect]
     Active Substance: LIDOCAINE HYDROCHLORIDE
     Dosage: 75 MG, UNK (0.5 PERCENT)
     Route: 042

REACTIONS (3)
  - Wrong technique in product usage process [Recovered/Resolved]
  - Seizure [Recovered/Resolved]
  - Toxicity to various agents [Recovered/Resolved]
